FAERS Safety Report 13264480 (Version 1)
Quarter: 2017Q1

REPORT INFORMATION
  Report Type: Spontaneous
  Country: US (occurrence: US)
  Receive Date: 20170222
  Receipt Date: 20170222
  Transmission Date: 20170428
  Serious: No
  Sender: FDA-Public Use
  Company Number: None

PATIENT
  Age: 33 Year
  Sex: Male
  Weight: 89 kg

DRUGS (2)
  1. DOXYCYCLINE. [Suspect]
     Active Substance: DOXYCYCLINE
     Indication: INFECTION
     Route: 048
     Dates: start: 20160606, end: 20160608
  2. CEFIXIME. [Suspect]
     Active Substance: CEFIXIME
     Indication: INFECTION
     Route: 048
     Dates: start: 20160608, end: 20160608

REACTIONS (2)
  - Stevens-Johnson syndrome [None]
  - Staphylococcus test [None]

NARRATIVE: CASE EVENT DATE: 20160608
